FAERS Safety Report 10214610 (Version 1)
Quarter: 2014Q2

REPORT INFORMATION
  Report Type: Spontaneous
  Country: US (occurrence: None)
  Receive Date: 20140602
  Receipt Date: 20140602
  Transmission Date: 20141212
  Serious: Yes (Other)
  Sender: FDA-Public Use
  Company Number: None

PATIENT
  Age: 59 Year
  Sex: Female

DRUGS (1)
  1. ACITRETIN [Suspect]
     Indication: PSORIASIS
     Dosage: WITH MEAL
     Route: 048
     Dates: start: 20140212

REACTIONS (3)
  - Alopecia [None]
  - Lip dry [None]
  - Blood cholesterol increased [None]
